FAERS Safety Report 25369296 (Version 1)
Quarter: 2025Q2

REPORT INFORMATION
  Report Type: Spontaneous
  Country: SA (occurrence: SA)
  Receive Date: 20250528
  Receipt Date: 20250528
  Transmission Date: 20250717
  Serious: Yes (Hospitalization)
  Sender: ALEXION PHARMACEUTICALS
  Company Number: SA-ASTRAZENECA-202505GLO023489SA

PATIENT
  Age: 76 Year

DRUGS (10)
  1. OMEPRAZOLE [Suspect]
     Active Substance: OMEPRAZOLE
     Route: 065
  2. BACTRIM [Suspect]
     Active Substance: SULFAMETHOXAZOLE\TRIMETHOPRIM
     Indication: Wound infection
     Route: 065
  3. BACTRIM [Suspect]
     Active Substance: SULFAMETHOXAZOLE\TRIMETHOPRIM
     Indication: Localised infection
  4. BACTRIM [Suspect]
     Active Substance: SULFAMETHOXAZOLE\TRIMETHOPRIM
     Indication: Soft tissue infection
  5. DESMOPRESSIN [Suspect]
     Active Substance: DESMOPRESSIN
     Dosage: 2 MILLIGRAM, Q6H
     Route: 065
  6. AMLODIPINE [Suspect]
     Active Substance: AMLODIPINE BESYLATE
     Dosage: 5 MILLIGRAM, QD
     Route: 065
  7. LEVOTHYROXINE [Concomitant]
     Active Substance: LEVOTHYROXINE
  8. METOPROLOL [Concomitant]
     Active Substance: METOPROLOL
  9. ASPIRIN [Concomitant]
     Active Substance: ASPIRIN
  10. INSULIN ASPART [Concomitant]
     Active Substance: INSULIN ASPART

REACTIONS (2)
  - Hyponatraemia [Unknown]
  - Hypochloraemia [Unknown]
